FAERS Safety Report 17227885 (Version 1)
Quarter: 2020Q1

REPORT INFORMATION
  Report Type: Spontaneous
  Country: DE (occurrence: DE)
  Receive Date: 20200103
  Receipt Date: 20200103
  Transmission Date: 20200409
  Serious: No
  Sender: FDA-Public Use
  Company Number: DE-LUPIN PHARMACEUTICALS INC.-2019-06715

PATIENT
  Sex: Male

DRUGS (1)
  1. OXYCODONE HCL 2 X TAGLICH HORMOSAN 10 MG RETARDTABLETTEN [Suspect]
     Active Substance: OXYCODONE HYDROCHLORIDE
     Indication: PAIN
     Dosage: 0.5 DOSAGE FORM, QD (1/2 TABLET EVENING)
     Route: 065

REACTIONS (2)
  - No adverse event [Unknown]
  - Product dose omission [Unknown]

NARRATIVE: CASE EVENT DATE: 20191012
